FAERS Safety Report 10172184 (Version 4)
Quarter: 2014Q3

REPORT INFORMATION
  Report Type: Spontaneous
  Country: JP (occurrence: JP)
  Receive Date: 20140515
  Receipt Date: 20140827
  Transmission Date: 20150326
  Serious: Yes (Other)
  Sender: FDA-Public Use
  Company Number: PHHY2014JP056666

PATIENT
  Age: 81 Year
  Sex: Female

DRUGS (5)
  1. GLIVEC [Suspect]
     Active Substance: IMATINIB MESYLATE
     Indication: GASTROINTESTINAL STROMAL TUMOUR
     Dosage: 400 MG, PER DAY
     Route: 048
     Dates: start: 2013, end: 2013
  2. GLIVEC [Suspect]
     Active Substance: IMATINIB MESYLATE
     Dosage: 100 MG, PER DAY
     Route: 048
     Dates: start: 201302, end: 2013
  3. PREDNISOLONE. [Concomitant]
     Active Substance: PREDNISOLONE
     Dosage: 30 MG, PER DAY
     Route: 048
     Dates: start: 201302
  4. SUNITINIB [Concomitant]
     Active Substance: SUNITINIB
     Dosage: 25 MG, PER DAY
     Route: 048
  5. SUNITINIB [Concomitant]
     Active Substance: SUNITINIB
     Dosage: 12.5 MG, PER DAY
     Route: 048

REACTIONS (14)
  - Nodule [Unknown]
  - Hypothyroidism [Unknown]
  - Dysgeusia [Unknown]
  - Vomiting [Unknown]
  - Cholecystitis [Unknown]
  - Gastrointestinal toxicity [Unknown]
  - Decreased appetite [Unknown]
  - Diabetes mellitus [Unknown]
  - Metastases to peritoneum [Recovered/Resolved]
  - Rash [Unknown]
  - Nausea [Unknown]
  - Metastases to liver [Recovered/Resolved]
  - Cholecystitis infective [Unknown]
  - Hypoaesthesia [Unknown]

NARRATIVE: CASE EVENT DATE: 201303
